FAERS Safety Report 5137115-9 (Version None)
Quarter: 2006Q4

REPORT INFORMATION
  Report Type: 
  Country: None (occurrence: None)
  Receive Date: 20061030
  Receipt Date: 20020513
  Transmission Date: 20070319
  Serious: No
  Sender: FDA-Public Use
  Company Number: US-GLAXOSMITHKLINE-A0369823A

PATIENT
  Age: 69 Year
  Sex: Female

DRUGS (9)
  1. ADVAIR HFA [Suspect]
     Indication: ASTHMA
     Dosage: 1PUFF TWICE PER DAY
     Route: 055
     Dates: start: 20030101, end: 20060101
  2. FLOVENT [Suspect]
     Indication: ASTHMA
     Route: 055
     Dates: start: 20000201
  3. SEREVENT [Suspect]
     Indication: ASTHMA
     Route: 055
     Dates: start: 20000101, end: 20060101
  4. ACCOLATE [Suspect]
     Indication: DRUG USE FOR UNKNOWN INDICATION
     Route: 065
  5. ZOCOR [Concomitant]
  6. FOSAMAX [Concomitant]
  7. SINGULAIR [Concomitant]
     Dates: start: 20060101
  8. ALBUTEROL [Concomitant]
     Dates: start: 20060101
  9. PREDNISONE TAB [Concomitant]
     Indication: SINUS POLYP
     Dates: start: 20060101

REACTIONS (1)
  - DYSPHONIA [None]
